FAERS Safety Report 25345971 (Version 1)
Quarter: 2025Q2

REPORT INFORMATION
  Report Type: Spontaneous
  Country: US (occurrence: US)
  Receive Date: 20250522
  Receipt Date: 20250522
  Transmission Date: 20250717
  Serious: No
  Sender: ROCHE
  Company Number: US-ROCHE-10000281365

PATIENT
  Sex: Female

DRUGS (1)
  1. XOLAIR [Suspect]
     Active Substance: OMALIZUMAB
     Indication: Urticaria
     Dosage: STRENGTH : 150 MG/ML
     Route: 058
     Dates: start: 202502

REACTIONS (3)
  - Urticaria [Recovered/Resolved]
  - Product storage error [Unknown]
  - Drug ineffective [Unknown]
